FAERS Safety Report 12327440 (Version 1)
Quarter: 2016Q2

REPORT INFORMATION
  Report Type: Spontaneous
  Country: US (occurrence: US)
  Receive Date: 20160503
  Receipt Date: 20160503
  Transmission Date: 20160815
  Serious: Yes (Hospitalization)
  Sender: FDA-Public Use
  Company Number: US-GLAXOSMITHKLINE-US2016060850

PATIENT
  Sex: Male

DRUGS (3)
  1. RISPERDAL [Concomitant]
     Active Substance: RISPERIDONE
  2. ADVAIR DISKUS [Suspect]
     Active Substance: FLUTICASONE PROPIONATE\SALMETEROL XINAFOATE
     Indication: BRONCHITIS
     Dosage: 1 PUFF(S), BID
     Route: 055
  3. NIASPAN [Concomitant]
     Active Substance: NIACIN

REACTIONS (6)
  - Secretion discharge [Unknown]
  - Overweight [Unknown]
  - Fatigue [Recovered/Resolved]
  - Cough [Unknown]
  - Malaise [Unknown]
  - Hypertension [Unknown]
